FAERS Safety Report 8606589 (Version 4)
Quarter: 2015Q3

REPORT INFORMATION
  Report Type: Spontaneous
  Country: US (occurrence: US)
  Receive Date: 20120608
  Receipt Date: 20150714
  Transmission Date: 20151125
  Serious: Yes (Hospitalization, Disabling, Other)
  Sender: FDA-Public Use
  Company Number: US-ASTRAZENECA-2011SE43789

PATIENT
  Age: 63 Year
  Sex: Female
  Weight: 72.6 kg

DRUGS (8)
  1. PULMICORT FLEXHALER [Suspect]
     Active Substance: BUDESONIDE
     Route: 055
  2. OMEPRAZOLE. [Suspect]
     Active Substance: OMEPRAZOLE
     Indication: GASTROOESOPHAGEAL REFLUX DISEASE
     Route: 048
     Dates: start: 2012
  3. NEXIUM [Suspect]
     Active Substance: ESOMEPRAZOLE MAGNESIUM
     Indication: GASTROOESOPHAGEAL REFLUX DISEASE
     Dosage: 40MG EVERY OTHER DAY
     Route: 048
  4. LUNESTA [Concomitant]
     Active Substance: ESZOPICLONE
  5. CELEBREX [Concomitant]
     Active Substance: CELECOXIB
  6. NEXIUM [Suspect]
     Active Substance: ESOMEPRAZOLE MAGNESIUM
     Indication: GASTROOESOPHAGEAL REFLUX DISEASE
     Route: 048
  7. NEXIUM [Suspect]
     Active Substance: ESOMEPRAZOLE MAGNESIUM
     Indication: GASTROOESOPHAGEAL REFLUX DISEASE
     Route: 048
     Dates: start: 2001, end: 2012
  8. NEXIUM [Suspect]
     Active Substance: ESOMEPRAZOLE MAGNESIUM
     Indication: GASTROOESOPHAGEAL REFLUX DISEASE
     Route: 048
     Dates: start: 20140318

REACTIONS (26)
  - Gait disturbance [Unknown]
  - Asthma [Unknown]
  - Hypoacusis [Unknown]
  - Nausea [Unknown]
  - Cartilage injury [Unknown]
  - Spondylitis [Unknown]
  - Tooth erosion [Unknown]
  - Drug dose omission [Not Recovered/Not Resolved]
  - Sinus disorder [Unknown]
  - Speech disorder [Unknown]
  - Infection [Unknown]
  - Stress [Unknown]
  - Poor quality sleep [Unknown]
  - Limb crushing injury [Unknown]
  - Oral discomfort [Unknown]
  - Intentional product misuse [Unknown]
  - Road traffic accident [Unknown]
  - Dyspnoea [Unknown]
  - Malaise [Not Recovered/Not Resolved]
  - Hyperphagia [Unknown]
  - Nasopharyngitis [Not Recovered/Not Resolved]
  - Drug ineffective [Unknown]
  - Gastrooesophageal reflux disease [Unknown]
  - Body height decreased [Unknown]
  - Weight increased [Unknown]
  - Throat irritation [Unknown]

NARRATIVE: CASE EVENT DATE: 2012
